FAERS Safety Report 4288944-5 (Version None)
Quarter: 2004Q1

REPORT INFORMATION
  Report Type: 
  Country: None (occurrence: None)
  Receive Date: 20040209
  Receipt Date: 20040127
  Transmission Date: 20041129
  Serious: Yes (Hospitalization)
  Sender: FDA-Public Use
  Company Number: PHRM2004FR00689

PATIENT
  Age: 64 Year
  Sex: Male
  Weight: 55 kg

DRUGS (6)
  1. LESCOL [Suspect]
     Dosage: 40 MG, QD
     Route: 048
     Dates: start: 20031113, end: 20031216
  2. TENORMIN [Concomitant]
     Dosage: 50 MG, BID
     Route: 048
     Dates: start: 20031113
  3. NITROGLYCERIN [Concomitant]
     Dosage: UNK, UNK
     Route: 048
     Dates: start: 20031113
  4. ASPIRIN [Concomitant]
     Dosage: 160 MG, QD
     Route: 048
     Dates: start: 20031113
  5. MOPRAL [Concomitant]
     Dosage: 20 MG, QD
     Route: 048
     Dates: start: 20031113
  6. PLAVIX [Concomitant]
     Dosage: UNK, UNK
     Route: 048
     Dates: start: 20031113

REACTIONS (9)
  - ARTHRALGIA [None]
  - CONJUNCTIVITIS [None]
  - DRUG RASH WITH EOSINOPHILIA AND SYSTEMIC SYMPTOMS [None]
  - FACE OEDEMA [None]
  - INFLAMMATION [None]
  - LEUKOCYTOSIS [None]
  - MYALGIA [None]
  - PYREXIA [None]
  - URTICARIA GENERALISED [None]
